FAERS Safety Report 4610121-6 (Version None)
Quarter: 2005Q1

REPORT INFORMATION
  Report Type: 
  Country: None (occurrence: None)
  Receive Date: 20050314
  Receipt Date: 20050301
  Transmission Date: 20050727
  Serious: Yes (Other)
  Sender: FDA-Public Use
  Company Number: 2005027051

PATIENT
  Age: 64 Year
  Sex: Female
  Weight: 63.5036 kg

DRUGS (2)
  1. BEXTRA [Suspect]
     Indication: OSTEOPOROSIS
     Dosage: 20 MG (10 MG, 2 IN 1 D),
     Dates: start: 20041222, end: 20041230
  2. RISEDRONATE SODIUM (RISEDRONATE SODIUM) [Concomitant]

REACTIONS (9)
  - CHEST PAIN [None]
  - DIZZINESS [None]
  - DYSPEPSIA [None]
  - DYSPNOEA [None]
  - FLUSHING [None]
  - STEVENS-JOHNSON SYNDROME [None]
  - SWELLING FACE [None]
  - SYNCOPE [None]
  - VISION BLURRED [None]
